FAERS Safety Report 9386357 (Version 2)
Quarter: 2014Q1

REPORT INFORMATION
  Report Type: Spontaneous
  Country: US (occurrence: US)
  Receive Date: 20130708
  Receipt Date: 20140317
  Transmission Date: 20141002
  Serious: Yes (Hospitalization)
  Sender: FDA-Public Use
  Company Number: US-BIOGENIDEC-2013BI059971

PATIENT
  Sex: Female

DRUGS (3)
  1. TYSABRI [Suspect]
     Indication: MULTIPLE SCLEROSIS
     Route: 042
     Dates: start: 20070611, end: 20110303
  2. TYSABRI [Suspect]
     Indication: MULTIPLE SCLEROSIS
     Route: 042
     Dates: start: 20120611
  3. BACLOFEN [Concomitant]

REACTIONS (6)
  - Convulsion [Recovered/Resolved]
  - Hip arthroplasty [Recovered/Resolved]
  - Loss of consciousness [Recovered/Resolved]
  - Arthropathy [Not Recovered/Not Resolved]
  - Muscle spasticity [Recovered/Resolved with Sequelae]
  - Neuropathy peripheral [Recovered/Resolved]
